FAERS Safety Report 10185005 (Version 1)
Quarter: 2014Q2

REPORT INFORMATION
  Report Type: Spontaneous
  Country: US (occurrence: None)
  Receive Date: 20140520
  Receipt Date: 20140520
  Transmission Date: 20141212
  Serious: Yes (Hospitalization)
  Sender: FDA-Public Use
  Company Number: None

PATIENT
  Age: 70 Year
  Sex: Male

DRUGS (11)
  1. CEFEPIME [Suspect]
     Indication: OSTEOMYELITIS
     Route: 042
     Dates: start: 20120808, end: 20120818
  2. VANCOMYCIN [Concomitant]
  3. ACETAMINOPHEN [Concomitant]
  4. ATORVASTATIN [Concomitant]
  5. DOCUSATE [Concomitant]
  6. EPOETIN [Concomitant]
  7. GABAPENTIN [Concomitant]
  8. INSULIN [Concomitant]
  9. LEVOTHYROXINE [Concomitant]
  10. SENNA [Concomitant]
  11. NEPHROCAPS [Concomitant]

REACTIONS (2)
  - Platelet count decreased [None]
  - Hypothermia [None]
